FAERS Safety Report 17579937 (Version 1)
Quarter: 2020Q1

REPORT INFORMATION
  Report Type: Spontaneous
  Country: GB (occurrence: GB)
  Receive Date: 20200325
  Receipt Date: 20200325
  Transmission Date: 20200409
  Serious: Yes (Other)
  Sender: FDA-Public Use
  Company Number: GB-ACCORD-176894

PATIENT
  Age: 34 Year
  Sex: Female
  Weight: 54.42 kg

DRUGS (4)
  1. PARACETAMOL [Concomitant]
     Active Substance: ACETAMINOPHEN
  2. TRAMADOL. [Concomitant]
     Active Substance: TRAMADOL
  3. SERTRALINE [Suspect]
     Active Substance: SERTRALINE HYDROCHLORIDE
     Indication: DEPRESSION
     Route: 048
     Dates: start: 201812
  4. SIROLIMUS. [Concomitant]
     Active Substance: SIROLIMUS

REACTIONS (1)
  - Night sweats [Recovered/Resolved]

NARRATIVE: CASE EVENT DATE: 201812
